FAERS Safety Report 8911004 (Version 1)
Quarter: 2012Q4

REPORT INFORMATION
  Report Type: 
  Country: JP (occurrence: JP)
  Receive Date: 20121115
  Receipt Date: 20121115
  Transmission Date: 20130627
  Serious: Yes (Other)
  Sender: FDA-Public Use
  Company Number: JP-MYLANLABS-2012S1023011

PATIENT
  Age: 66 Year
  Sex: Male

DRUGS (8)
  1. AMIODARONE [Suspect]
     Indication: ATRIAL FIBRILLATION
     Dosage: 200 mg/day for 9 days
     Route: 065
  2. AMIODARONE [Interacting]
     Indication: ATRIAL FIBRILLATION
     Dosage: 100 mg/day
     Route: 065
  3. CARVEDILOL [Interacting]
     Indication: ATRIAL FIBRILLATION
     Dosage: 2.5 mg/day
     Route: 065
  4. METILDIGOXIN [Interacting]
     Dosage: 0.1 mg/day
     Route: 065
  5. FUROSEMIDE [Concomitant]
     Dosage: 120 mg/day
     Route: 065
  6. SPIRONOLACTONE [Concomitant]
     Dosage: 25 mg/day
     Route: 065
  7. POTASSIUM ASPARTATE [Concomitant]
     Dosage: 900 mg/day
     Route: 065
  8. WARFARIN [Concomitant]
     Dosage: 1.5 mg/day
     Route: 065

REACTIONS (4)
  - Torsade de pointes [Recovered/Resolved]
  - Atrioventricular block complete [Recovered/Resolved]
  - Electrocardiogram T wave abnormal [Recovered/Resolved]
  - Drug interaction [Recovered/Resolved]
